FAERS Safety Report 5478495-4 (Version None)
Quarter: 2007Q4

REPORT INFORMATION
  Report Type: 
  Country: None (occurrence: None)
  Receive Date: 20071005
  Receipt Date: 20070924
  Transmission Date: 20080405
  Serious: Yes (Disabling)
  Sender: FDA-Public Use
  Company Number: GB-ASTRAZENECA-2007SE05294

PATIENT
  Sex: Male
  Weight: 64 kg

DRUGS (2)
  1. AMIAS [Suspect]
     Indication: HYPERTENSION
     Route: 048
     Dates: start: 20070201, end: 20070704
  2. FENOFIBRATE [Concomitant]
     Route: 048
     Dates: start: 20050101

REACTIONS (2)
  - JAUNDICE [None]
  - PRURITUS [None]
